FAERS Safety Report 9164200 (Version 3)
Quarter: 2013Q2

REPORT INFORMATION
  Report Type: Spontaneous
  Country: US (occurrence: US)
  Receive Date: 20130315
  Receipt Date: 20130429
  Transmission Date: 20140414
  Serious: Yes (Hospitalization, Other)
  Sender: FDA-Public Use
  Company Number: US-BIOGENIDEC-2013BI022298

PATIENT
  Age: 71 Year
  Sex: Female
  Weight: 53 kg

DRUGS (28)
  1. AVONEX [Suspect]
     Indication: MULTIPLE SCLEROSIS
     Route: 030
     Dates: start: 200801
  2. ALPRAZOLAM [Concomitant]
     Route: 048
  3. FLUTICASONE [Concomitant]
  4. CHOLECALCIFEROL [Concomitant]
  5. MULTIPLE VITAMIN [Concomitant]
     Route: 048
  6. ESCITALOPRAM [Concomitant]
     Route: 048
  7. PREDNISONE [Concomitant]
     Route: 048
  8. PREDNISONE [Concomitant]
     Route: 048
  9. OXYMETAZOLINE HCL [Concomitant]
  10. IPRATROPIUM [Concomitant]
  11. SERTRALINE [Concomitant]
     Route: 048
  12. DONEPEZIL [Concomitant]
     Route: 048
     Dates: start: 20121128
  13. PRIMIDONE [Concomitant]
     Route: 048
     Dates: start: 20121109
  14. ALBUTEROL [Concomitant]
     Dates: start: 20121010
  15. SPIRIVA [Concomitant]
  16. ASPIRIN [Concomitant]
     Route: 048
  17. SENNA [Concomitant]
     Route: 048
  18. ACTIFED [Concomitant]
     Route: 048
  19. ADVAIR [Concomitant]
  20. WARFARIN [Concomitant]
     Route: 048
     Dates: start: 20130318
  21. HYDROCODONE/ACETAMINOPHEN [Concomitant]
     Route: 048
     Dates: start: 20130308
  22. METOPROLOL TARTRATE [Concomitant]
     Route: 048
     Dates: start: 20130225
  23. CITALOPRAM [Concomitant]
     Route: 048
  24. GUAIFENESIN [Concomitant]
     Route: 048
     Dates: start: 20130101
  25. NICOTINE [Concomitant]
     Dates: start: 20130101
  26. PHENOL [Concomitant]
     Dates: start: 20130101
  27. DILAUDID [Concomitant]
     Route: 042
  28. METHYLPREDNISOLONE [Concomitant]
     Route: 042

REACTIONS (6)
  - Hip fracture [Not Recovered/Not Resolved]
  - Bronchitis [Unknown]
  - Acute myocardial infarction [Unknown]
  - Coronary artery disease [Unknown]
  - Fall [Recovered/Resolved]
  - Hysterectomy [Unknown]
